FAERS Safety Report 21986167 (Version 1)
Quarter: 2023Q1

REPORT INFORMATION
  Report Type: Spontaneous
  Country: IT (occurrence: None)
  Receive Date: 20230213
  Receipt Date: 20230213
  Transmission Date: 20230417
  Serious: Yes (Death)
  Sender: FDA-Public Use
  Company Number: 2023A036873

PATIENT
  Age: 19 Year
  Sex: Male

DRUGS (4)
  1. QUETIAPINE [Suspect]
     Active Substance: QUETIAPINE
     Route: 048
  2. ALPRAZOLAM [Suspect]
     Active Substance: ALPRAZOLAM
  3. SERTRALINE [Suspect]
     Active Substance: SERTRALINE HYDROCHLORIDE
  4. CHLORPHENIRAMINE MALEATE\CODEINE PHOSPHATE\METHYLEPHEDRINE HYDROCHLORI [Suspect]
     Active Substance: CHLORPHENIRAMINE MALEATE\CODEINE PHOSPHATE\METHYLEPHEDRINE HYDROCHLORIDE\SULFOGAIACOL
     Route: 048

REACTIONS (5)
  - Toxicity to various agents [Fatal]
  - Drug abuse [Fatal]
  - Completed suicide [Fatal]
  - Overdose [Fatal]
  - Respiratory depression [Fatal]

NARRATIVE: CASE EVENT DATE: 20210901
